FAERS Safety Report 8941662 (Version 2)
Quarter: 2013Q1

REPORT INFORMATION
  Report Type: Spontaneous
  Country: US (occurrence: US)
  Receive Date: 20121203
  Receipt Date: 20130111
  Transmission Date: 20140127
  Serious: No
  Sender: FDA-Public Use
  Company Number: US-009507513-1211USA012239

PATIENT
  Age: 20 Year
  Sex: Female
  Weight: 48.73 kg

DRUGS (1)
  1. IMPLANON [Suspect]
     Indication: CONTRACEPTION
     Dosage: 1 DF, UP TO 3 YEARS
     Route: 059
     Dates: start: 20120302

REACTIONS (4)
  - Unintended pregnancy [Unknown]
  - Device breakage [Unknown]
  - Implant site bruising [Unknown]
  - Menstruation irregular [Unknown]
